FAERS Safety Report 6455545-X (Version None)
Quarter: 2009Q4

REPORT INFORMATION
  Report Type: 
  Country: None (occurrence: None)
  Receive Date: 20091125
  Receipt Date: 20090915
  Transmission Date: 20100525
  Serious: No
  Sender: FDA-Public Use
  Company Number: US-ABBOTT-09P-163-0597970-00

PATIENT
  Sex: Male
  Weight: 86.26 kg

DRUGS (2)
  1. SIMCOR [Suspect]
     Indication: BLOOD CHOLESTEROL INCREASED
     Dates: start: 20090908
  2. METOPROLOL TARTRATE [Concomitant]
     Indication: BLOOD PRESSURE

REACTIONS (2)
  - ABDOMINAL PAIN UPPER [None]
  - PRURITUS [None]
